FAERS Safety Report 4566300-X (Version None)
Quarter: 2005Q1

REPORT INFORMATION
  Report Type: 
  Country: None (occurrence: None)
  Receive Date: 20050126
  Receipt Date: 20050126
  Transmission Date: 20050727
  Serious: Yes (Other)
  Sender: FDA-Public Use
  Company Number: None

PATIENT
  Sex: Male

DRUGS (2)
  1. VORICONAZOLE   400 MG [Suspect]
     Indication: PNEUMONIA
     Dosage: 400 MG    BID  ORAL
     Route: 048
     Dates: start: 20041127, end: 20041128
  2. ARABINOSYLCYTOSINE - ARA C- [Concomitant]

REACTIONS (1)
  - VISUAL DISTURBANCE [None]
